FAERS Safety Report 13412980 (Version 4)
Quarter: 2022Q2

REPORT INFORMATION
  Report Type: Spontaneous
  Country: US (occurrence: US)
  Receive Date: 20170406
  Receipt Date: 20220411
  Transmission Date: 20220720
  Serious: No
  Sender: FDA-Public Use
  Company Number: US-JNJFOC-20170312169

PATIENT
  Sex: Male

DRUGS (18)
  1. RISPERDAL [Suspect]
     Active Substance: RISPERIDONE
     Indication: Bipolar disorder
     Dosage: IN VARYING DOSES OF 2 MG AND 3 MG
     Route: 048
     Dates: start: 20110610, end: 20110929
  2. RISPERDAL [Suspect]
     Active Substance: RISPERIDONE
     Indication: Schizophrenia
     Route: 048
     Dates: start: 20120105, end: 20130508
  3. RISPERDAL [Suspect]
     Active Substance: RISPERIDONE
     Indication: Anxiety
     Route: 048
     Dates: start: 20120714, end: 20130723
  4. RISPERDAL [Suspect]
     Active Substance: RISPERIDONE
     Indication: Psychotic disorder
  5. RISPERDAL [Suspect]
     Active Substance: RISPERIDONE
     Indication: Dissociative disorder
  6. RISPERDAL [Suspect]
     Active Substance: RISPERIDONE
     Indication: Depression
  7. RISPERIDONE [Suspect]
     Active Substance: RISPERIDONE
     Indication: Bipolar disorder
     Dosage: VARYING DOSES OF 0.5 MG, 1 MG AND 2 MG
     Route: 048
     Dates: start: 20110614, end: 20130425
  8. RISPERIDONE [Suspect]
     Active Substance: RISPERIDONE
     Indication: Schizophrenia
  9. RISPERIDONE [Suspect]
     Active Substance: RISPERIDONE
     Indication: Anxiety
  10. RISPERIDONE [Suspect]
     Active Substance: RISPERIDONE
     Indication: Psychotic disorder
  11. RISPERIDONE [Suspect]
     Active Substance: RISPERIDONE
     Indication: Dissociative disorder
  12. RISPERIDONE [Suspect]
     Active Substance: RISPERIDONE
     Indication: Depression
  13. RISPERDAL CONSTA [Suspect]
     Active Substance: RISPERIDONE
     Indication: Bipolar disorder
     Dosage: VARYING DOSE OF 25 MG, 37.5 MG AND 50 MG
     Route: 030
     Dates: start: 20110620
  14. RISPERDAL CONSTA [Suspect]
     Active Substance: RISPERIDONE
     Indication: Schizophrenia
     Dosage: VARYING DOSE OF 25 MG, 37.5 MG AND 50 MG
     Route: 030
     Dates: start: 201107, end: 20130508
  15. RISPERDAL CONSTA [Suspect]
     Active Substance: RISPERIDONE
     Indication: Anxiety
     Route: 030
     Dates: end: 20130924
  16. RISPERDAL CONSTA [Suspect]
     Active Substance: RISPERIDONE
     Indication: Psychotic disorder
  17. RISPERDAL CONSTA [Suspect]
     Active Substance: RISPERIDONE
     Indication: Dissociative disorder
  18. RISPERDAL CONSTA [Suspect]
     Active Substance: RISPERIDONE
     Indication: Depression

REACTIONS (7)
  - Emotional disorder [Unknown]
  - Gynaecomastia [Unknown]
  - Weight increased [Unknown]
  - Vomiting [Unknown]
  - Fatigue [Unknown]
  - Product use complaint [Unknown]
  - Product dose omission issue [Unknown]

NARRATIVE: CASE EVENT DATE: 20110101
